FAERS Safety Report 22345839 (Version 1)
Quarter: 2023Q2

REPORT INFORMATION
  Report Type: Spontaneous
  Country: BG (occurrence: None)
  Receive Date: 20230519
  Receipt Date: 20230519
  Transmission Date: 20230722
  Serious: Yes (Hospitalization)
  Sender: FDA-Public Use
  Company Number: 2023A113769

PATIENT
  Age: 21574 Day
  Sex: Female

DRUGS (4)
  1. FASENRA [Suspect]
     Active Substance: BENRALIZUMAB
     Indication: Asthma
     Route: 058
     Dates: start: 20230427
  2. BECLOMETHASONE\FORMOTEROL [Concomitant]
     Active Substance: BECLOMETHASONE\FORMOTEROL
     Dosage: 2X2 SPRAYS/DAY
  3. TIOTROPIUM [Concomitant]
     Active Substance: TIOTROPIUM
     Dosage: 2 SPRAYS/DAY
  4. FLUTICASONE PROPIONATE [Concomitant]
     Active Substance: FLUTICASONE PROPIONATE
     Dosage: 2X1 SPRAYS/DAY

REACTIONS (4)
  - Condition aggravated [Recovering/Resolving]
  - Feeling hot [Unknown]
  - Dyspnoea [Recovering/Resolving]
  - Chest pain [Unknown]

NARRATIVE: CASE EVENT DATE: 20230427
